FAERS Safety Report 5453285-7 (Version None)
Quarter: 2007Q3

REPORT INFORMATION
  Report Type: 
  Country: None (occurrence: None)
  Receive Date: 20070914
  Receipt Date: 20070906
  Transmission Date: 20080115
  Serious: Yes (Other)
  Sender: FDA-Public Use
  Company Number: US-PFIZER INC-2007075655

PATIENT
  Sex: Female
  Weight: 80 kg

DRUGS (4)
  1. CADUET [Suspect]
     Dosage: TEXT:5/10 MG
  2. PAXIL [Concomitant]
  3. BUSPAR [Concomitant]
  4. SYNTHROID [Concomitant]

REACTIONS (1)
  - BONE PAIN [None]
